FAERS Safety Report 13984143 (Version 1)
Quarter: 2017Q3

REPORT INFORMATION
  Report Type: Spontaneous
  Country: FR (occurrence: FR)
  Receive Date: 20170918
  Receipt Date: 20170918
  Transmission Date: 20171128
  Serious: Yes (Death)
  Sender: FDA-Public Use
  Company Number: FR-ALSI-201700304

PATIENT
  Age: 66 Year
  Sex: Male

DRUGS (1)
  1. OXYGENE MEDICINAL ALSF GAZ FOR INHALATION EN BOUTELLE OXYGEN [Suspect]
     Active Substance: OXYGEN
     Indication: CARDIAC ARREST
     Route: 055
     Dates: start: 20170913, end: 20170913

REACTIONS (5)
  - Accidental underdose [Fatal]
  - Condition aggravated [Fatal]
  - Device failure [Fatal]
  - Device use issue [None]
  - Cardiac arrest [None]

NARRATIVE: CASE EVENT DATE: 20170913
